FAERS Safety Report 17351784 (Version 3)
Quarter: 2020Q1

REPORT INFORMATION
  Report Type: Spontaneous
  Country: JP (occurrence: JP)
  Receive Date: 20200130
  Receipt Date: 20200221
  Transmission Date: 20200409
  Serious: Yes (Hospitalization, Other)
  Sender: FDA-Public Use
  Company Number: JP-FERRINGPH-2020FE00517

PATIENT
  Sex: Male

DRUGS (7)
  1. KINEDAK [Concomitant]
     Active Substance: EPALRESTAT
  2. PROTON PUMP INHIBITORS [Concomitant]
     Active Substance: UNSPECIFIED INGREDIENT
  3. GONAX [Suspect]
     Active Substance: DEGARELIX
     Indication: PRODUCT USED FOR UNKNOWN INDICATION
     Dosage: 80 MG, MONTHLY
     Route: 058
     Dates: start: 201910
  4. DIPEPTIDYL PEPTIDASE 4 (DPP-4) INHIBITORS [Concomitant]
     Active Substance: UNSPECIFIED INGREDIENT
  5. URIEF [Concomitant]
     Active Substance: SILODOSIN
  6. GONAX [Suspect]
     Active Substance: DEGARELIX
     Dosage: 120 MG
     Route: 058
     Dates: start: 201909, end: 201909
  7. ANGIOTENSIN II RECEPTOR BLOCKERS (ARBS), PLAIN [Concomitant]

REACTIONS (4)
  - Autonomic nervous system imbalance [Unknown]
  - Ketosis [Unknown]
  - Glycosylated haemoglobin increased [Unknown]
  - Hypoglycaemia [Unknown]

NARRATIVE: CASE EVENT DATE: 201910
